FAERS Safety Report 24983537 (Version 1)
Quarter: 2025Q1

REPORT INFORMATION
  Report Type: Spontaneous
  Country: US (occurrence: US)
  Receive Date: 20250219
  Receipt Date: 20250219
  Transmission Date: 20250409
  Serious: No
  Sender: Kenvue
  Company Number: US-KENVUE-20250106115

PATIENT

DRUGS (8)
  1. PEPCID [Suspect]
     Active Substance: FAMOTIDINE
     Indication: Mast cell activation syndrome
     Dosage: 2 DOSAGE FORM, AT NIGHT AND IN THE MORNING
     Route: 065
  2. ALLEGRA [Concomitant]
     Active Substance: FEXOFENADINE HYDROCHLORIDE
     Indication: Mast cell activation syndrome
     Dosage: 2 DOSAGE FORM, AT NIGHT AND IN THE MORNING
     Route: 065
  3. MONTELUKAST [Concomitant]
     Active Substance: MONTELUKAST
     Indication: Mast cell activation syndrome
     Dosage: 1 PILL, AT NIGHT
     Route: 065
  4. NALTREXONE [Concomitant]
     Active Substance: NALTREXONE
     Indication: Mast cell activation syndrome
     Route: 065
     Dates: start: 202405
  5. VITAMIN C [Concomitant]
     Active Substance: ASCORBIC ACID
     Indication: Mast cell activation syndrome
     Route: 065
  6. QUERCETIN [Concomitant]
     Active Substance: QUERCETIN
     Indication: Mast cell activation syndrome
     Route: 065
  7. Histamine X [Concomitant]
     Indication: Mast cell activation syndrome
     Route: 065
  8. DAO enzymes [Concomitant]
     Indication: Mast cell activation syndrome
     Route: 065

REACTIONS (3)
  - Off label use [Unknown]
  - Therapeutic response unexpected [Unknown]
  - Prescribed overdose [Unknown]
